FAERS Safety Report 13693873 (Version 1)
Quarter: 2017Q2

REPORT INFORMATION
  Report Type: Spontaneous
  Country: US (occurrence: US)
  Receive Date: 20170626
  Receipt Date: 20170626
  Transmission Date: 20170830
  Serious: Yes (Hospitalization, Disabling)
  Sender: FDA-Public Use
  Company Number: None

PATIENT
  Age: 44 Year
  Sex: Female
  Weight: 63 kg

DRUGS (9)
  1. LISINIPRIL [Concomitant]
     Active Substance: LISINOPRIL
  2. ALPRAZOLAM. [Suspect]
     Active Substance: ALPRAZOLAM
     Indication: PANIC ATTACK
     Dosage: ?          OTHER STRENGTH:MG;QUANTITY:150 TABLET(S);?
     Route: 048
  3. ZOLOFT [Concomitant]
     Active Substance: SERTRALINE HYDROCHLORIDE
  4. ALPRAZOLAM. [Suspect]
     Active Substance: ALPRAZOLAM
     Indication: ANXIETY
     Dosage: ?          OTHER STRENGTH:MG;QUANTITY:150 TABLET(S);?
     Route: 048
  5. ESTRADOL [Concomitant]
  6. XANAX [Concomitant]
     Active Substance: ALPRAZOLAM
  7. TRAZODONE [Concomitant]
     Active Substance: TRAZODONE HYDROCHLORIDE
  8. IBUPROFEN. [Concomitant]
     Active Substance: IBUPROFEN
  9. NORCO [Concomitant]
     Active Substance: ACETAMINOPHEN\HYDROCODONE BITARTRATE

REACTIONS (22)
  - Neuralgia [None]
  - Obsessive-compulsive disorder [None]
  - Malaise [None]
  - Vomiting [None]
  - Drug tolerance [None]
  - Disturbance in attention [None]
  - Herpes zoster [None]
  - Nausea [None]
  - Hallucinations, mixed [None]
  - Drug withdrawal syndrome [None]
  - Memory impairment [None]
  - Bradyphrenia [None]
  - Depression [None]
  - Speech disorder [None]
  - Abasia [None]
  - Somnolence [None]
  - Anxiety [None]
  - Derealisation [None]
  - Psychotic disorder [None]
  - Panic attack [None]
  - Depersonalisation/derealisation disorder [None]
  - Loss of consciousness [None]

NARRATIVE: CASE EVENT DATE: 20090601
